FAERS Safety Report 18347130 (Version 1)
Quarter: 2020Q4

REPORT INFORMATION
  Report Type: Spontaneous
  Country: JP (occurrence: JP)
  Receive Date: 20201006
  Receipt Date: 20201006
  Transmission Date: 20210114
  Serious: Yes (Other)
  Sender: FDA-Public Use
  Company Number: JP-ROCHE-2689779

PATIENT
  Sex: Male

DRUGS (2)
  1. ALECENSA [Suspect]
     Active Substance: ALECTINIB HYDROCHLORIDE
     Dosage: UNCERTAIN DOSAGE AND FOR 9 MONTHS
     Route: 048
  2. ALECENSA [Suspect]
     Active Substance: ALECTINIB HYDROCHLORIDE
     Indication: LUNG NEOPLASM MALIGNANT
     Dosage: UNCERTAIN DOSAGE AND FOR 3YEARS AND 3 MONTHS
     Route: 048

REACTIONS (3)
  - Metastases to central nervous system [Unknown]
  - Neoplasm progression [Unknown]
  - Lung carcinoma cell type unspecified recurrent [Unknown]
